FAERS Safety Report 10206852 (Version 1)
Quarter: 2014Q2

REPORT INFORMATION
  Report Type: Spontaneous
  Country: US (occurrence: US)
  Receive Date: 20140530
  Receipt Date: 20140530
  Transmission Date: 20141212
  Serious: No
  Sender: FDA-Public Use
  Company Number: US-009507513-1005USA04309

PATIENT
  Sex: Male

DRUGS (1)
  1. TRUSOPT [Suspect]
     Dosage: BOTH IN AM AND PM 3.
     Route: 047
     Dates: start: 20100415, end: 20100515

REACTIONS (2)
  - Eye irritation [Unknown]
  - Lacrimation increased [Unknown]
